FAERS Safety Report 8168872-5 (Version None)
Quarter: 2012Q1

REPORT INFORMATION
  Report Type: 
  Country: None (occurrence: None)
  Receive Date: 20120227
  Receipt Date: 20120216
  Transmission Date: 20120608
  Serious: Yes (Hospitalization, Disabling)
  Sender: FDA-Public Use
  Company Number: FR-BAXTER-2012BH005012

PATIENT
  Age: 62 Year
  Sex: Female

DRUGS (18)
  1. CYCLOPHOSPHAMIDE [Suspect]
     Indication: CHRONIC LYMPHOCYTIC LEUKAEMIA
     Route: 042
     Dates: start: 20030101, end: 20060501
  2. VINCRISTINE [Concomitant]
     Indication: CHRONIC LYMPHOCYTIC LEUKAEMIA
     Route: 042
     Dates: start: 20030101, end: 20040201
  3. DOXORUBICIN HCL [Concomitant]
     Indication: CHRONIC LYMPHOCYTIC LEUKAEMIA
     Route: 042
     Dates: start: 20030101, end: 20040201
  4. CYCLOPHOSPHAMIDE [Suspect]
     Indication: CHRONIC LYMPHOCYTIC LEUKAEMIA
     Route: 048
     Dates: start: 20090401, end: 20090401
  5. ANTILYMPHOCYTE SERUM [Concomitant]
     Indication: PROPHYLAXIS AGAINST TRANSPLANT REJECTION
     Route: 065
     Dates: start: 20100417, end: 20100421
  6. GAMMAGARD S/D [Suspect]
     Indication: HYPOGAMMAGLOBULINAEMIA
     Route: 065
     Dates: start: 20090201
  7. CYCLOSPORINE [Concomitant]
     Indication: PROPHYLAXIS AGAINST TRANSPLANT REJECTION
     Route: 065
     Dates: start: 20100417, end: 20100421
  8. CYCLOPHOSPHAMIDE [Suspect]
     Route: 048
     Dates: start: 20090106, end: 20090101
  9. FLUDARABINE PHOSPHATE [Suspect]
     Indication: CHRONIC LYMPHOCYTIC LEUKAEMIA
     Route: 048
     Dates: start: 20090401, end: 20090401
  10. FLUDARABINE PHOSPHATE [Suspect]
     Route: 048
     Dates: start: 20090225, end: 20090201
  11. FLUDARABINE PHOSPHATE [Suspect]
     Route: 065
     Dates: start: 20100417, end: 20100421
  12. FLUDARABINE PHOSPHATE [Suspect]
     Route: 048
     Dates: start: 20090106, end: 20090101
  13. OCTAGAM [Concomitant]
     Indication: PRODUCT USED FOR UNKNOWN INDICATION
     Route: 065
     Dates: start: 20060401, end: 20060501
  14. BUSULFAN [Concomitant]
     Indication: PROPHYLAXIS AGAINST TRANSPLANT REJECTION
     Route: 065
     Dates: start: 20100417, end: 20100421
  15. MABTHERA [Suspect]
     Indication: CHRONIC LYMPHOCYTIC LEUKAEMIA
     Route: 042
     Dates: start: 20090106, end: 20090403
  16. CYCLOPHOSPHAMIDE [Suspect]
     Route: 048
     Dates: start: 20090225, end: 20090201
  17. FLUDARABINE PHOSPHATE [Suspect]
     Route: 042
     Dates: start: 20051101, end: 20060501
  18. PREDNISOLONE [Concomitant]
     Indication: CHRONIC LYMPHOCYTIC LEUKAEMIA
     Route: 042
     Dates: start: 20030101, end: 20040201

REACTIONS (14)
  - HYPERPROTEINAEMIA [None]
  - OPTIC NEUROPATHY [None]
  - CEREBELLAR SYNDROME [None]
  - BLOOD CREATININE INCREASED [None]
  - AGITATION [None]
  - TOXIC NEUROPATHY [None]
  - PERSONALITY CHANGE [None]
  - NEOPLASM RECURRENCE [None]
  - CHRONIC LYMPHOCYTIC LEUKAEMIA [None]
  - INSOMNIA [None]
  - FACIAL PAIN [None]
  - HALLUCINATION, AUDITORY [None]
  - BLOOD LACTIC ACID INCREASED [None]
  - DYSPHAGIA [None]
